FAERS Safety Report 5331632-4 (Version None)
Quarter: 2007Q2

REPORT INFORMATION
  Report Type: 
  Country: None (occurrence: None)
  Receive Date: 20070516
  Receipt Date: 20070508
  Transmission Date: 20071010
  Serious: Yes (Hospitalization, Other)
  Sender: FDA-Public Use
  Company Number: 163-21880-07030139

PATIENT
  Age: 74 Year
  Sex: Male

DRUGS (18)
  1. REVLIMID [Suspect]
     Indication: MULTIPLE MYELOMA
     Dosage: SEE IMAGE
     Route: 048
     Dates: start: 20070109, end: 20070219
  2. REVLIMID [Suspect]
     Indication: MULTIPLE MYELOMA
     Dosage: SEE IMAGE
     Route: 048
     Dates: start: 20070301, end: 20070326
  3. BENADRYL [Suspect]
     Indication: DRUG USE FOR UNKNOWN INDICATION
  4. PERCOCET [Concomitant]
  5. DIGOXIN [Concomitant]
  6. LASIX [Concomitant]
  7. LORAZEPAM [Concomitant]
  8. ASPIRIN [Concomitant]
  9. TARKA (UDRAMIL) [Concomitant]
  10. FOLIC ACID [Concomitant]
  11. CENTRUM SILVER (CENTRUM SILVER) [Concomitant]
  12. PHENERGAN WITH CODEINE (PHENERGAN WITH CODEINE) [Concomitant]
  13. PERCODAN (PERCODAN) [Concomitant]
  14. MULTIVITAMIN [Concomitant]
  15. ATENOLOL [Concomitant]
  16. DIAZIDE (GLICLAZIDE) [Concomitant]
  17. THORAZINE [Concomitant]
  18. DECADRON [Concomitant]

REACTIONS (4)
  - CHOLESTASIS [None]
  - DIARRHOEA [None]
  - HEPATITIS [None]
  - PULMONARY EMBOLISM [None]
